FAERS Safety Report 8589639-X (Version None)
Quarter: 2012Q3

REPORT INFORMATION
  Report Type: 
  Country: None (occurrence: None)
  Receive Date: 20120813
  Receipt Date: 20120802
  Transmission Date: 20120928
  Serious: Yes (Other)
  Sender: FDA-Public Use
  Company Number: CA-ROCHE-1091289

PATIENT
  Sex: Male
  Weight: 77.18 kg

DRUGS (6)
  1. ESCITALOPRAM [Concomitant]
  2. AVASTIN [Suspect]
     Indication: GLIOBLASTOMA
     Route: 042
     Dates: start: 20120302
  3. CARBAMAZEPINE [Concomitant]
  4. FINASTERIDE [Concomitant]
     Dosage: SANDOZ FINASTERIDE
  5. AVASTIN [Suspect]
     Route: 042
  6. ZOPICLONE [Concomitant]

REACTIONS (6)
  - CONFUSIONAL STATE [None]
  - AMNESIA [None]
  - PAIN IN EXTREMITY [None]
  - NUCLEAR MAGNETIC RESONANCE IMAGING ABNORMAL [None]
  - NERVOUS SYSTEM DISORDER [None]
  - MUSCLE SPASMS [None]
